FAERS Safety Report 4804464-0 (Version None)
Quarter: 2005Q4

REPORT INFORMATION
  Report Type: 
  Country: None (occurrence: None)
  Receive Date: 20051017
  Receipt Date: 20051003
  Transmission Date: 20060501
  Serious: Yes (Life-Threatening, Hospitalization)
  Sender: FDA-Public Use
  Company Number: 218549

PATIENT
  Age: 64 Year
  Sex: Male

DRUGS (3)
  1. MABTHERA (RITUXIMAB) CONC FOR SOLUTION FOR INFUSION [Suspect]
     Indication: MANTLE CELL LYMPHOMA
     Dosage: 416 MG, SINGLE, INTRAVENOUS
     Route: 042
  2. POLARAMINE [Concomitant]
  3. SOLU-MEDROL [Concomitant]

REACTIONS (2)
  - ANAPHYLACTIC REACTION [None]
  - INFUSION RELATED REACTION [None]
